FAERS Safety Report 7386030-9 (Version None)
Quarter: 2011Q1

REPORT INFORMATION
  Report Type: 
  Country: None (occurrence: None)
  Receive Date: 20110331
  Receipt Date: 20110317
  Transmission Date: 20110831
  Serious: Yes (Hospitalization, Other)
  Sender: FDA-Public Use
  Company Number: US-ELI_LILLY_AND_COMPANY-US201001000471

PATIENT
  Age: 91 Year
  Sex: Female

DRUGS (5)
  1. FORTEO [Suspect]
     Indication: OSTEOPOROSIS
     Dosage: 20 UG, DAILY (1/D)
  2. COUMADIN [Concomitant]
  3. CARDIZEM [Concomitant]
  4. FORTEO [Suspect]
     Dosage: UNK, UNKNOWN
  5. BETAPACE [Concomitant]

REACTIONS (6)
  - FATIGUE [None]
  - HEART RATE INCREASED [None]
  - FEELING ABNORMAL [None]
  - HEART RATE IRREGULAR [None]
  - CONSTIPATION [None]
  - DYSPNOEA [None]
